FAERS Safety Report 12911453 (Version 1)
Quarter: 2016Q4

REPORT INFORMATION
  Report Type: Spontaneous
  Country: US (occurrence: US)
  Receive Date: 20161102
  Receipt Date: 20161102
  Transmission Date: 20170207
  Serious: Yes (Hospitalization)
  Sender: FDA-Public Use
  Company Number: None

PATIENT
  Age: 54 Year
  Sex: Female
  Weight: 75.9 kg

DRUGS (2)
  1. LINEZOLID. [Suspect]
     Active Substance: LINEZOLID
     Indication: PERITONITIS
     Dosage: INTRAVENOUS (NOT OTHERWISE SPECIFIED)
     Route: 042
     Dates: start: 20161020, end: 20161030
  2. LINEZOLID. [Suspect]
     Active Substance: LINEZOLID
     Indication: ENTEROCOCCAL INFECTION
     Dosage: INTRAVENOUS (NOT OTHERWISE SPECIFIED)
     Route: 042
     Dates: start: 20161020, end: 20161030

REACTIONS (7)
  - Serotonin syndrome [None]
  - Agitation [None]
  - Paranoia [None]
  - Muscle twitching [None]
  - Encephalopathy [None]
  - Dyskinesia [None]
  - Flushing [None]

NARRATIVE: CASE EVENT DATE: 20161030
